FAERS Safety Report 11745184 (Version 2)
Quarter: 2015Q4

REPORT INFORMATION
  Report Type: Report from Study
  Country: UY (occurrence: UY)
  Receive Date: 20151117
  Receipt Date: 20151117
  Transmission Date: 20160304
  Serious: Yes (Other)
  Sender: FDA-Public Use
  Company Number: UY-ROCHE-1641744

PATIENT
  Sex: Female

DRUGS (12)
  1. KETOPROFEN. [Concomitant]
     Active Substance: KETOPROFEN
  2. XELODA [Suspect]
     Active Substance: CAPECITABINE
     Indication: BREAST CANCER METASTATIC
     Route: 065
     Dates: start: 20150825
  3. AMITRIPTYLINE [Concomitant]
     Active Substance: AMITRIPTYLINE
  4. RISPERIDONE. [Concomitant]
     Active Substance: RISPERIDONE
  5. VENLAFAXINE [Concomitant]
     Active Substance: VENLAFAXINE HYDROCHLORIDE
  6. KETOFEN [Concomitant]
     Active Substance: KETOPROFEN
  7. GUTRON [Concomitant]
     Active Substance: MIDODRINE
  8. MIDODRINE [Concomitant]
     Active Substance: MIDODRINE
  9. GABAPENTIN. [Concomitant]
     Active Substance: GABAPENTIN
  10. LANZOPRAL [Concomitant]
  11. ALPRAZOLAM. [Concomitant]
     Active Substance: ALPRAZOLAM
  12. FLUNITRAZEPAM [Concomitant]
     Active Substance: FLUNITRAZEPAM
     Route: 065

REACTIONS (11)
  - Pain in extremity [Unknown]
  - Nail disorder [Unknown]
  - Dry skin [Unknown]
  - Blister [Unknown]
  - Wound [Unknown]
  - Peripheral swelling [Unknown]
  - Pain [Unknown]
  - Skin exfoliation [Unknown]
  - Impaired healing [Not Recovered/Not Resolved]
  - Feeling hot [Unknown]
  - Skin discolouration [Not Recovered/Not Resolved]
